FAERS Safety Report 19647155 (Version 1)
Quarter: 2021Q3

REPORT INFORMATION
  Report Type: Report from Study
  Country: US (occurrence: US)
  Receive Date: 20210802
  Receipt Date: 20210802
  Transmission Date: 20211014
  Serious: Yes (Death, Other)
  Sender: FDA-Public Use
  Company Number: US-MYLANLABS-2021M1046895

PATIENT
  Age: 5 Year
  Sex: Male

DRUGS (4)
  1. DEXAMETHASONE. [Suspect]
     Active Substance: DEXAMETHASONE
     Indication: PROPHYLAXIS
     Dosage: 8 MILLIGRAM/SQ. METER, QD
     Route: 065
  2. ETOPOSIDE. [Suspect]
     Active Substance: ETOPOSIDE
     Indication: ACUTE LYMPHOCYTIC LEUKAEMIA
     Dosage: 100 MILLIGRAM/SQ. METER, QD
     Route: 065
  3. BENDAMUSTINE HYDROCHLORIDE. [Suspect]
     Active Substance: BENDAMUSTINE HYDROCHLORIDE
     Indication: ACUTE LYMPHOCYTIC LEUKAEMIA
     Dosage: 60 MILLIGRAM/SQ. METER, QD
     Route: 065
  4. CLOFARABINE. [Suspect]
     Active Substance: CLOFARABINE
     Indication: ACUTE LYMPHOCYTIC LEUKAEMIA
     Dosage: 40 MILLIGRAM/SQ. METER, QD
     Route: 065

REACTIONS (3)
  - Systemic inflammatory response syndrome [Fatal]
  - Tumour lysis syndrome [Fatal]
  - Myelosuppression [Unknown]
